FAERS Safety Report 21195557 (Version 1)
Quarter: 2022Q3

REPORT INFORMATION
  Report Type: Spontaneous
  Country: JP (occurrence: JP)
  Receive Date: 20220810
  Receipt Date: 20220810
  Transmission Date: 20221027
  Serious: Yes (Death, Hospitalization)
  Sender: FDA-Public Use
  Company Number: JP-BRISTOL-MYERS SQUIBB COMPANY-2022-066850

PATIENT
  Age: 81 Year
  Sex: Male

DRUGS (4)
  1. HYDREA [Suspect]
     Active Substance: HYDROXYUREA
     Indication: Essential thrombocythaemia
     Dosage: DAYS OF ADMINISTRATION: 13 DAYS
     Route: 048
  2. HYDREA [Suspect]
     Active Substance: HYDROXYUREA
     Indication: Myelofibrosis
  3. ANAGRELIDE [Suspect]
     Active Substance: ANAGRELIDE
     Indication: Essential thrombocythaemia
     Dosage: DAYS OF ADMINISTRATION: 25 DAYS
     Route: 048
  4. ANAGRELIDE [Suspect]
     Active Substance: ANAGRELIDE
     Indication: Myelofibrosis

REACTIONS (2)
  - Coronavirus test positive [Fatal]
  - Platelet count increased [Not Recovered/Not Resolved]
